FAERS Safety Report 9761469 (Version 1)
Quarter: 2013Q4

REPORT INFORMATION
  Report Type: Spontaneous
  Country: US (occurrence: US)
  Receive Date: 20131216
  Receipt Date: 20131216
  Transmission Date: 20140711
  Serious: No
  Sender: FDA-Public Use
  Company Number: US-BIOGENIDEC-2013BI107257

PATIENT
  Age: 63 Year
  Sex: Female

DRUGS (1)
  1. TECFIDERA [Suspect]
     Indication: MULTIPLE SCLEROSIS
     Route: 048
     Dates: start: 201308, end: 20131008

REACTIONS (8)
  - Abdominal distension [Recovered/Resolved]
  - Chest discomfort [Recovered/Resolved]
  - Diaphragmalgia [Recovered/Resolved]
  - Middle insomnia [Recovered/Resolved]
  - Dizziness [Recovered/Resolved]
  - Mental impairment [Recovered/Resolved]
  - Flushing [Recovered/Resolved]
  - Abdominal discomfort [Recovered/Resolved]
